FAERS Safety Report 14067380 (Version 1)
Quarter: 2017Q4

REPORT INFORMATION
  Report Type: Spontaneous
  Country: US (occurrence: None)
  Receive Date: 20171009
  Receipt Date: 20171009
  Transmission Date: 20180321
  Serious: Yes (Life-Threatening, Hospitalization)
  Sender: FDA-Public Use
  Company Number: None

PATIENT
  Age: 63 Year
  Sex: Female
  Weight: 72.1 kg

DRUGS (13)
  1. PERCOCET [Concomitant]
     Active Substance: ACETAMINOPHEN\OXYCODONE HYDROCHLORIDE
  2. CALCIUM CARBONATE/VITAMIN D3 (CALCIUM 600 + D) [Concomitant]
  3. METHYLPHENIDATE (RITALIN) [Concomitant]
  4. ZYPREXA [Concomitant]
     Active Substance: OLANZAPINE
  5. HYDROCODONE-HOMATROPINE (HYDROMET) [Concomitant]
  6. NIVOLUMAB [Suspect]
     Active Substance: NIVOLUMAB
     Indication: RENAL CELL CARCINOMA
     Route: 042
     Dates: start: 20170929
  7. LIPITOR [Concomitant]
     Active Substance: ATORVASTATIN CALCIUM
  8. TEMAZEPAM (RESTORIL) [Concomitant]
  9. AMLODIPINE-BENAZEPRIL (LOTREL) [Concomitant]
  10. ASPIRIN, ENTERIC COATED [Concomitant]
  11. LANSOPRAZOLE  (PREVACID) [Concomitant]
  12. LORATADINE (CLARITIN) [Concomitant]
  13. VITAMIN E [Concomitant]
     Active Substance: .ALPHA.-TOCOPHEROL

REACTIONS (4)
  - Hyponatraemia [None]
  - Toxicity to various agents [None]
  - Inappropriate antidiuretic hormone secretion [None]
  - Confusional state [None]

NARRATIVE: CASE EVENT DATE: 20171007
